FAERS Safety Report 8114238-3 (Version None)
Quarter: 2012Q1

REPORT INFORMATION
  Report Type: 
  Country: None (occurrence: None)
  Receive Date: 20120206
  Receipt Date: 20120131
  Transmission Date: 20120608
  Serious: Yes (Death)
  Sender: FDA-Public Use
  Company Number: ES-AMGEN-ESPSP2012006765

PATIENT
  Age: 48 Year

DRUGS (1)
  1. ETANERCEPT [Suspect]
     Indication: PSORIASIS
     Dosage: UNK
     Dates: start: 20090701, end: 20091225

REACTIONS (1)
  - GASTRIC CANCER [None]
